FAERS Safety Report 6412750-6 (Version None)
Quarter: 2009Q4

REPORT INFORMATION
  Report Type: 
  Country: None (occurrence: None)
  Receive Date: 20091023
  Receipt Date: 20091009
  Transmission Date: 20100525
  Serious: Yes (Hospitalization, Other)
  Sender: FDA-Public Use
  Company Number: US-BAYER-200935391GPV

PATIENT
  Age: 56 Year
  Sex: Male
  Weight: 56 kg

DRUGS (19)
  1. CLOPIDOGREL [Interacting]
     Indication: DRUG USE FOR UNKNOWN INDICATION
     Route: 048
  2. TETRAHYDROCANNABINOL [Interacting]
     Indication: DEPRESSION
     Dosage: 1-2 JOINTS EVERY 2 WEEKS (0,5-1 G EVERY 2 WEEK)
     Route: 055
  3. TETRAHYDROCANNABINOL [Interacting]
     Dosage: 4-5 JOINTS PER WEEK (2,0-2,5 G/WEEK)
     Route: 055
  4. WARFARIN SODIUM [Interacting]
     Indication: DRUG USE FOR UNKNOWN INDICATION
     Route: 065
  5. WARFARIN SODIUM [Interacting]
     Route: 065
  6. WARFARIN SODIUM [Interacting]
     Route: 065
  7. WARFARIN SODIUM [Interacting]
     Route: 065
  8. WARFARIN SODIUM [Interacting]
     Route: 065
  9. WARFARIN SODIUM [Interacting]
     Route: 065
  10. WARFARIN SODIUM [Interacting]
     Route: 065
  11. VALPROIC ACID [Suspect]
     Indication: DRUG USE FOR UNKNOWN INDICATION
     Route: 048
  12. TRAMADOL HCL [Suspect]
     Indication: PAIN
     Dosage: 50 MG EVERY 6 HOURS AS NEEDED
     Route: 048
  13. CARBAMAZEPINE [Suspect]
     Indication: DRUG USE FOR UNKNOWN INDICATION
     Dosage: SUSTAINED ACTION
     Route: 048
  14. SERTRALINE HCL [Suspect]
     Indication: DRUG USE FOR UNKNOWN INDICATION
     Route: 048
  15. ASPIRIN [Suspect]
     Indication: DRUG USE FOR UNKNOWN INDICATION
     Route: 048
  16. FUROSEMIDE [Concomitant]
     Indication: DRUG USE FOR UNKNOWN INDICATION
     Route: 048
  17. METOPROLOL [Concomitant]
     Indication: DRUG USE FOR UNKNOWN INDICATION
     Dosage: TOTAL DAILY DOSE: 25 MG
     Route: 048
  18. POTASSIUM CHLORIDE [Concomitant]
     Indication: DRUG USE FOR UNKNOWN INDICATION
     Route: 048
  19. OMEPRAZOLE [Concomitant]
     Indication: DRUG USE FOR UNKNOWN INDICATION
     Route: 048

REACTIONS (7)
  - EPISTAXIS [None]
  - GASTRIC ULCER [None]
  - HAEMOGLOBIN DECREASED [None]
  - INCREASED TENDENCY TO BRUISE [None]
  - INTERNATIONAL NORMALISED RATIO INCREASED [None]
  - MELAENA [None]
  - SYNCOPE [None]
